FAERS Safety Report 6687896-8 (Version None)
Quarter: 2010Q2

REPORT INFORMATION
  Report Type: 
  Country: None (occurrence: None)
  Receive Date: 20100420
  Receipt Date: 20100414
  Transmission Date: 20101027
  Serious: Yes (Other)
  Sender: FDA-Public Use
  Company Number: US-RB-006987-10

PATIENT
  Age: 34 Year
  Sex: Female

DRUGS (2)
  1. SUBOXONE [Suspect]
     Route: 060
     Dates: start: 20100414
  2. SUBOXONE [Suspect]
     Route: 060
     Dates: start: 20100413, end: 20100413

REACTIONS (2)
  - HALLUCINATIONS, MIXED [None]
  - INSOMNIA [None]
